FAERS Safety Report 9894914 (Version 1)
Quarter: 2014Q1

REPORT INFORMATION
  Report Type: Spontaneous
  Country: US (occurrence: US)
  Receive Date: 20140213
  Receipt Date: 20140213
  Transmission Date: 20141002
  Serious: No
  Sender: FDA-Public Use
  Company Number: US-SA-2014SA005919

PATIENT
  Sex: Female

DRUGS (2)
  1. KYNAMRO [Suspect]
     Indication: TYPE IIA HYPERLIPIDAEMIA
     Route: 065
  2. OTHER LIPID MODIFYING AGENTS [Concomitant]

REACTIONS (1)
  - Injection site urticaria [Not Recovered/Not Resolved]
